FAERS Safety Report 5166005-0 (Version None)
Quarter: 2006Q4

REPORT INFORMATION
  Report Type: 
  Country: None (occurrence: None)
  Receive Date: 20061128
  Receipt Date: 20061110
  Transmission Date: 20070319
  Serious: Yes (Hospitalization)
  Sender: FDA-Public Use
  Company Number: 27882

PATIENT
  Age: 82 Year
  Sex: Male
  Weight: 81.6475 kg

DRUGS (2)
  1. NAPROXEN SODIUM [Suspect]
     Indication: PAIN
     Dosage: ORAL
     Route: 048
     Dates: start: 20050801, end: 20050817
  2. HYDROCHLOROTHIAZIDE [Concomitant]

REACTIONS (4)
  - GASTRIC PERFORATION [None]
  - HAEMORRHAGE [None]
  - KIDNEY PERFORATION [None]
  - LOSS OF CONSCIOUSNESS [None]
